FAERS Safety Report 5361750-6 (Version None)
Quarter: 2007Q2

REPORT INFORMATION
  Report Type: 
  Country: None (occurrence: None)
  Receive Date: 20070615
  Receipt Date: 20070604
  Transmission Date: 20071010
  Serious: Yes (Disabling)
  Sender: FDA-Public Use
  Company Number: GXKR2007US04835

PATIENT
  Age: 82 Year
  Sex: Female
  Weight: 56.2 kg

DRUGS (9)
  1. ASPIRIN [Suspect]
  2. ATENOLOL [Suspect]
  3. AMLODIPINE [Suspect]
  4. ISOSORBIDE MONONITRATE [Suspect]
  5. LISINOPRIL [Suspect]
  6. SIMVASTATIN [Suspect]
  7. LANOXIN [Suspect]
     Dosage: SEE IMAGE
  8. MOXIFLOXACIN HCL [Suspect]
  9. COUMADIN [Suspect]

REACTIONS (3)
  - ASTHENIA [None]
  - FATIGUE [None]
  - LOBAR PNEUMONIA [None]
